FAERS Safety Report 14827183 (Version 11)
Quarter: 2018Q3

REPORT INFORMATION
  Report Type: Report from Study
  Country: CA (occurrence: CA)
  Receive Date: 20180430
  Receipt Date: 20180928
  Transmission Date: 20181010
  Serious: Yes (Other)
  Sender: FDA-Public Use
  Company Number: CA-ROCHE-1199083

PATIENT
  Age: 66 Year
  Sex: Female
  Weight: 60 kg

DRUGS (18)
  1. ACTEMRA [Suspect]
     Active Substance: TOCILIZUMAB
     Route: 042
     Dates: start: 20151105
  2. ACTEMRA [Suspect]
     Active Substance: TOCILIZUMAB
     Route: 042
     Dates: start: 20180222
  3. NAPROXEN. [Suspect]
     Active Substance: NAPROXEN
     Indication: PRODUCT USED FOR UNKNOWN INDICATION
     Route: 065
     Dates: end: 20150914
  4. BREO ELLIPTA [Concomitant]
     Active Substance: FLUTICASONE FUROATE\VILANTEROL TRIFENATATE
  5. MONTELUKAST [Concomitant]
     Active Substance: MONTELUKAST SODIUM
  6. SINGULAIR [Concomitant]
     Active Substance: MONTELUKAST SODIUM
  7. ACTEMRA [Suspect]
     Active Substance: TOCILIZUMAB
     Route: 042
     Dates: start: 20140829
  8. METHOTREXATE. [Concomitant]
     Active Substance: METHOTREXATE
  9. ACTEMRA [Suspect]
     Active Substance: TOCILIZUMAB
     Indication: RHEUMATOID ARTHRITIS
     Route: 042
     Dates: start: 20110714
  10. ACTEMRA [Suspect]
     Active Substance: TOCILIZUMAB
     Route: 042
     Dates: start: 20140801
  11. FOLIC ACID. [Concomitant]
     Active Substance: FOLIC ACID
  12. AVAPRO [Concomitant]
     Active Substance: IRBESARTAN
  13. ACTEMRA [Suspect]
     Active Substance: TOCILIZUMAB
     Route: 042
     Dates: start: 20160509
  14. MONOCOR [Concomitant]
     Active Substance: BISOPROLOL FUMARATE
  15. BREO ELLIPTA [Concomitant]
     Active Substance: FLUTICASONE FUROATE\VILANTEROL TRIFENATATE
  16. ACTEMRA [Suspect]
     Active Substance: TOCILIZUMAB
     Route: 042
     Dates: start: 20180710
  17. HYDROCHLOROTHIAZIDE. [Concomitant]
     Active Substance: HYDROCHLOROTHIAZIDE
  18. ACTEMRA [Suspect]
     Active Substance: TOCILIZUMAB
     Route: 042
     Dates: start: 20160606

REACTIONS (57)
  - Pneumonia [Not Recovered/Not Resolved]
  - Cataract [Not Recovered/Not Resolved]
  - Lung disorder [Recovered/Resolved]
  - Cough [Not Recovered/Not Resolved]
  - Dry throat [Unknown]
  - Foot deformity [Not Recovered/Not Resolved]
  - Blood pressure systolic increased [Unknown]
  - Pulmonary fibrosis [Unknown]
  - Cough [Unknown]
  - Tooth disorder [Unknown]
  - Dyspnoea [Unknown]
  - Blood pressure increased [Unknown]
  - Sinus congestion [Not Recovered/Not Resolved]
  - Nasal congestion [Not Recovered/Not Resolved]
  - Lower respiratory tract infection [Unknown]
  - Influenza [Recovered/Resolved]
  - Body temperature decreased [Unknown]
  - Musculoskeletal stiffness [Unknown]
  - Joint stiffness [Not Recovered/Not Resolved]
  - Heart rate irregular [Unknown]
  - Oropharyngeal pain [Unknown]
  - C-reactive protein increased [Unknown]
  - Chest pain [Recovered/Resolved]
  - Blood pressure increased [Recovering/Resolving]
  - Pyrexia [Not Recovered/Not Resolved]
  - Chills [Unknown]
  - Muscular weakness [Unknown]
  - Weight increased [Unknown]
  - Weight decreased [Unknown]
  - Abdominal pain upper [Not Recovered/Not Resolved]
  - Wheezing [Recovering/Resolving]
  - Bronchitis [Not Recovered/Not Resolved]
  - Lower respiratory tract infection [Not Recovered/Not Resolved]
  - Cough [Unknown]
  - Throat irritation [Unknown]
  - Arthralgia [Unknown]
  - Bronchitis [Not Recovered/Not Resolved]
  - Nasopharyngitis [Recovered/Resolved]
  - Tremor [Not Recovered/Not Resolved]
  - Rhinorrhoea [Recovering/Resolving]
  - Heart rate increased [Unknown]
  - Heart rate increased [Unknown]
  - Arthritis infective [Recovered/Resolved]
  - Body temperature decreased [Unknown]
  - Localised infection [Unknown]
  - Hypokinesia [Unknown]
  - Pneumonia [Unknown]
  - Pulmonary fibrosis [Not Recovered/Not Resolved]
  - Tooth fracture [Unknown]
  - Ear discomfort [Not Recovered/Not Resolved]
  - Laceration [Unknown]
  - Diarrhoea [Not Recovered/Not Resolved]
  - Food poisoning [Recovered/Resolved]
  - Weight decreased [Not Recovered/Not Resolved]
  - Infusion related reaction [Unknown]
  - Asthenia [Not Recovered/Not Resolved]
  - Seasonal allergy [Unknown]

NARRATIVE: CASE EVENT DATE: 2012
